FAERS Safety Report 10210573 (Version 1)
Quarter: 2014Q2

REPORT INFORMATION
  Report Type: Spontaneous
  Country: NL (occurrence: NL)
  Receive Date: 20140602
  Receipt Date: 20140602
  Transmission Date: 20141212
  Serious: Yes (Other)
  Sender: FDA-Public Use
  Company Number: NL-PFIZER INC-2014146876

PATIENT
  Age: 62 Year
  Sex: Female
  Weight: 87 kg

DRUGS (5)
  1. ATORVASTATIN PFIZER [Suspect]
     Indication: BLOOD CHOLESTEROL
     Dosage: 10 MG, 1X/DAY
     Dates: start: 2013, end: 201403
  2. ARCOXIA [Concomitant]
     Dosage: UNK
     Dates: start: 2010
  3. ENALAPRIL [Concomitant]
     Dosage: UNK
     Dates: start: 2010
  4. NORVASC [Concomitant]
     Dosage: UNK
     Dates: start: 2010
  5. NEXIUM [Concomitant]
     Dosage: UNK
     Dates: start: 2010

REACTIONS (5)
  - Suicidal ideation [Not Recovered/Not Resolved]
  - Aggression [Not Recovered/Not Resolved]
  - Nocturia [Not Recovered/Not Resolved]
  - Poor quality sleep [Not Recovered/Not Resolved]
  - Nightmare [Not Recovered/Not Resolved]
